FAERS Safety Report 4711210-8 (Version None)
Quarter: 2005Q3

REPORT INFORMATION
  Report Type: 
  Country: None (occurrence: None)
  Receive Date: 20050708
  Receipt Date: 20050628
  Transmission Date: 20060218
  Serious: Yes (Hospitalization)
  Sender: FDA-Public Use
  Company Number: 8010814

PATIENT
  Age: 48 Year
  Sex: Female

DRUGS (6)
  1. KEPPRA [Suspect]
     Indication: DRUG RESISTANCE
     Dosage: 500 MG 2/D PO
     Route: 048
     Dates: start: 20050503, end: 20050604
  2. KEPPRA [Suspect]
     Indication: EPILEPSY
     Dosage: 500 MG 2/D PO
     Route: 048
     Dates: start: 20050503, end: 20050604
  3. PANTOPRAZOLE [Concomitant]
  4. ITROP [Concomitant]
  5. ORFIRIL [Concomitant]
  6. AMPICILLIN SODIUM AND SULBACTAM SODIUM [Concomitant]

REACTIONS (9)
  - BRONCHOPNEUMONIA [None]
  - DEPRESSED LEVEL OF CONSCIOUSNESS [None]
  - DRUG HYPERSENSITIVITY [None]
  - INFECTION [None]
  - INFLAMMATION [None]
  - PNEUMONIA [None]
  - SEPSIS [None]
  - THROMBOCYTOPENIA [None]
  - URINARY BLADDER HAEMORRHAGE [None]
